FAERS Safety Report 5450945-9 (Version None)
Quarter: 2007Q3

REPORT INFORMATION
  Report Type: 
  Country: None (occurrence: None)
  Receive Date: 20070911
  Receipt Date: 20070906
  Transmission Date: 20080115
  Serious: Yes (Hospitalization)
  Sender: FDA-Public Use
  Company Number: CHPA2007US05517

PATIENT
  Age: 2 Year
  Sex: Male

DRUGS (1)
  1. EX-LAX REG STR CHOCOLATED LAX PCS SEN (NCH) (SENNA GLYCOSIDES (CA SALT [Suspect]
     Dosage: INGESTED UNKNOWN AMOUNT, ORAL
     Route: 048

REACTIONS (6)
  - ACCIDENTAL DRUG INTAKE BY CHILD [None]
  - ACCIDENTAL OVERDOSE [None]
  - CAUSTIC INJURY [None]
  - DERMATITIS BULLOUS [None]
  - DERMATITIS DIAPER [None]
  - DIARRHOEA [None]
